FAERS Safety Report 13711595 (Version 1)
Quarter: 2017Q3

REPORT INFORMATION
  Report Type: Spontaneous
  Country: US (occurrence: US)
  Receive Date: 20170703
  Receipt Date: 20170703
  Transmission Date: 20171127
  Serious: No
  Sender: FDA-Public Use
  Company Number: US-BAYER-2017-120412

PATIENT
  Sex: Female
  Weight: 68 kg

DRUGS (2)
  1. ALEVE [Suspect]
     Active Substance: NAPROXEN SODIUM
     Indication: PRODUCT USE IN UNAPPROVED INDICATION
     Dosage: 2 DF, UNK (TABLET/CAPLET/GELCAP)
     Route: 048
     Dates: start: 201509
  2. BAYER ASPIRIN [Suspect]
     Active Substance: ASPIRIN

REACTIONS (3)
  - Back pain [Unknown]
  - Product use in unapproved indication [Unknown]
  - Product use issue [Unknown]
